FAERS Safety Report 9962126 (Version 1)
Quarter: 2014Q1

REPORT INFORMATION
  Report Type: Report from Study
  Country: US (occurrence: US)
  Receive Date: 20140305
  Receipt Date: 20140305
  Transmission Date: 20141002
  Serious: No
  Sender: FDA-Public Use
  Company Number: US-ABBVIE-13P-163-1115777-00

PATIENT
  Age: 57 Year
  Sex: Male

DRUGS (20)
  1. HUMIRA [Suspect]
     Indication: CROHN^S DISEASE
     Dates: start: 20130419
  2. LISINOPRIL [Concomitant]
     Indication: BLOOD PRESSURE
     Dosage: 20/25 MG DAILY
  3. HYDROCORTISONE [Concomitant]
     Indication: HAEMORRHOIDS
  4. NEXIUM [Concomitant]
     Indication: CROHN^S DISEASE
     Dosage: 40 MG TWICE DAILY
  5. HYDROSCYAMINE [Concomitant]
     Indication: HAEMORRHOIDS
  6. WARFARIN [Concomitant]
     Indication: PROTEIN S DEFICIENCY
     Dosage: 5 MG DAILY ON MONDAY, WEDNESDAY, AND SUNDAY
  7. WARFARIN [Concomitant]
     Dosage: 7.5 MG TUESDAY, THURSDAY, AND SATURDAYS
  8. AMITRIPTYLINE [Concomitant]
     Indication: VITAMIN SUPPLEMENTATION
     Dosage: 25 MG ONE AT BEDTIME
  9. AMITRIPTYLINE [Concomitant]
     Indication: PAIN IN EXTREMITY
  10. FOSAMAX [Concomitant]
     Indication: OSTEOPOROSIS
  11. LIPITOR [Concomitant]
     Indication: BLOOD CHOLESTEROL INCREASED
     Dosage: 40 MG DAILY
  12. LOVAZA FISH OIL [Concomitant]
     Indication: VITAMIN SUPPLEMENTATION
     Dosage: TWICE DAILY
  13. FERROUS SULFATE [Concomitant]
     Indication: VITAMIN SUPPLEMENTATION
     Dosage: 325 MG DAILY
  14. BENADRYL [Concomitant]
     Indication: HYPERSENSITIVITY
     Dosage: 25 MG AT BEDTIME
  15. VITAMIN D SUPPLEMENT [Concomitant]
     Indication: VITAMIN SUPPLEMENTATION
     Dosage: 2000 IU ONE DAILY
  16. FOLIC ACID [Concomitant]
     Indication: VITAMIN SUPPLEMENTATION
     Dosage: 400 MG DAILY
  17. B COMPLEX [Concomitant]
     Indication: VITAMIN SUPPLEMENTATION
     Dosage: ONE DAILY
  18. CALCIUM CITRATE [Concomitant]
     Indication: VITAMIN SUPPLEMENTATION
     Dosage: 630 TWICE DAILY
  19. VITAMIN D [Concomitant]
     Indication: VITAMIN SUPPLEMENTATION
     Dosage: 500 TWICE DAILY
  20. PROBIOTIC [Concomitant]
     Indication: VITAMIN SUPPLEMENTATION
     Dosage: ONE DAILY

REACTIONS (1)
  - Oropharyngeal pain [Not Recovered/Not Resolved]
